FAERS Safety Report 5591453-4 (Version None)
Quarter: 2007Q4

REPORT INFORMATION
  Report Type: 
  Country: None (occurrence: None)
  Receive Date: 20071212
  Receipt Date: 20070727
  Transmission Date: 20080405
  Serious: Yes (Disabling)
  Sender: FDA-Public Use
  Company Number: USA-2007-0028594

PATIENT
  Sex: Male

DRUGS (1)
  1. OXYCONTIN [Suspect]
     Indication: COMPLEX REGIONAL PAIN SYNDROME
     Dosage: ORAL
     Route: 048

REACTIONS (6)
  - AMNESIA [None]
  - COMPLEX REGIONAL PAIN SYNDROME [None]
  - CONFUSIONAL STATE [None]
  - INADEQUATE ANALGESIA [None]
  - PAIN [None]
  - SWELLING [None]
